FAERS Safety Report 24114843 (Version 1)
Quarter: 2024Q3

REPORT INFORMATION
  Report Type: Spontaneous
  Country: US (occurrence: US)
  Receive Date: 20240721
  Receipt Date: 20240721
  Transmission Date: 20241016
  Serious: Yes (Hospitalization, Other)
  Sender: DR REDDYS
  Company Number: US-DRL-USA-LIT/USA/24/0010469

PATIENT
  Age: 66 Year
  Sex: Male

DRUGS (23)
  1. FENTANYL [Suspect]
     Active Substance: FENTANYL\FENTANYL CITRATE
     Indication: Pain
     Dosage: 480 MORPHINE MILLIGRAM EQUIVALENTS (MME) DAILY
  2. FENTANYL [Suspect]
     Active Substance: FENTANYL\FENTANYL CITRATE
     Indication: Back pain
  3. CLONIDINE [Suspect]
     Active Substance: CLONIDINE
     Indication: Product used for unknown indication
  4. CLONIDINE [Suspect]
     Active Substance: CLONIDINE
     Route: 042
  5. MORPHINE [Suspect]
     Active Substance: MORPHINE
     Indication: Product used for unknown indication
  6. DIPHENHYDRAMINE [Suspect]
     Active Substance: DIPHENHYDRAMINE
     Indication: Product used for unknown indication
     Route: 042
  7. ATIVAN [Suspect]
     Active Substance: LORAZEPAM
     Indication: Product used for unknown indication
     Route: 042
  8. ATIVAN [Suspect]
     Active Substance: LORAZEPAM
     Route: 042
  9. MAGNESIUM SULFATE [Suspect]
     Active Substance: MAGNESIUM SULFATE\MAGNESIUM SULFATE HEPTAHYDRATE
     Indication: Product used for unknown indication
     Route: 042
  10. OXYCODONE [Suspect]
     Active Substance: OXYCODONE
     Indication: Pain
     Dosage: 480 MORPHINE MILLIGRAM EQUIVALENTS (MME) DAILY
  11. OXYCODONE [Suspect]
     Active Substance: OXYCODONE
     Indication: Back pain
  12. DROPERIDOL [Suspect]
     Active Substance: DROPERIDOL
     Indication: Product used for unknown indication
     Route: 042
  13. LYRICA [Suspect]
     Active Substance: PREGABALIN
     Indication: Pain
  14. GABAPENTIN [Suspect]
     Active Substance: GABAPENTIN
     Indication: Pain
  15. GABAPENTIN [Suspect]
     Active Substance: GABAPENTIN
     Indication: Back pain
  16. KETAMINE [Suspect]
     Active Substance: KETAMINE
     Indication: Pain
  17. KETAMINE [Suspect]
     Active Substance: KETAMINE
     Indication: Back pain
  18. CYMBALTA [Suspect]
     Active Substance: DULOXETINE HYDROCHLORIDE
     Indication: Pain
  19. CYMBALTA [Suspect]
     Active Substance: DULOXETINE HYDROCHLORIDE
     Indication: Back pain
  20. CANNABIS SATIVA SUBSP. INDICA TOP [Suspect]
     Active Substance: CANNABIS SATIVA SUBSP. INDICA TOP
     Indication: Pain
  21. CANNABIS SATIVA SUBSP. INDICA TOP [Suspect]
     Active Substance: CANNABIS SATIVA SUBSP. INDICA TOP
     Indication: Back pain
  22. NALTREXONE [Suspect]
     Active Substance: NALTREXONE
     Indication: Pain
     Dosage: FIRST WEEK WITH PLANS TO GRADUALLY INCREASE TO 4.5?MG/DAILY
     Route: 048
  23. NALTREXONE [Suspect]
     Active Substance: NALTREXONE
     Indication: Back pain

REACTIONS (2)
  - Terminal ileitis [Unknown]
  - Drug ineffective for unapproved indication [Unknown]
